FAERS Safety Report 24464838 (Version 1)
Quarter: 2024Q4

REPORT INFORMATION
  Report Type: Spontaneous
  Country: US (occurrence: US)
  Receive Date: 20241018
  Receipt Date: 20241018
  Transmission Date: 20250115
  Serious: No
  Sender: BIOGEN
  Company Number: US-BIOGEN-2020BI00963725

PATIENT
  Age: 62 Year
  Sex: Female

DRUGS (5)
  1. VUMERITY [Suspect]
     Active Substance: DIROXIMEL FUMARATE
     Indication: Multiple sclerosis
     Dosage: TAKE 2 CAPSULES?(462MG) BY MOUTH?TWICE DAILY.
     Route: 050
     Dates: start: 20201219
  2. VUMERITY [Suspect]
     Active Substance: DIROXIMEL FUMARATE
     Route: 050
     Dates: start: 20201209
  3. CALTRATE WITH VITAMIN D [Concomitant]
     Active Substance: CALCIUM CARBONATE\CHOLECALCIFEROL
     Route: 050
  4. ATIVAN [Concomitant]
     Active Substance: LORAZEPAM
     Route: 050
  5. VITAMIN C [Concomitant]
     Active Substance: ASCORBIC ACID
     Route: 050

REACTIONS (6)
  - Prescribed overdose [Unknown]
  - COVID-19 [Unknown]
  - Multiple sclerosis [Unknown]
  - Gastrointestinal disorder [Recovered/Resolved]
  - Flushing [Unknown]
  - Lymphocyte count decreased [Unknown]

NARRATIVE: CASE EVENT DATE: 20201219
